FAERS Safety Report 4384604-0 (Version None)
Quarter: 2004Q2

REPORT INFORMATION
  Report Type: 
  Country: None (occurrence: None)
  Receive Date: 20040625
  Receipt Date: 20040616
  Transmission Date: 20050107
  Serious: Yes (Other)
  Sender: FDA-Public Use
  Company Number: PHBS2004JP07929

PATIENT
  Age: 45 Year
  Sex: Male

DRUGS (2)
  1. CYCLOSPORINE [Suspect]
     Indication: STEM CELL TRANSPLANT
     Route: 065
     Dates: start: 20030101, end: 20030101
  2. METHOTREXATE [Suspect]
     Indication: STEM CELL TRANSPLANT
     Route: 065
     Dates: start: 20030101, end: 20030101

REACTIONS (4)
  - BLOOD CREATININE INCREASED [None]
  - BLOOD UREA INCREASED [None]
  - RENAL FAILURE ACUTE [None]
  - VENOOCCLUSIVE DISEASE [None]
